FAERS Safety Report 14133171 (Version 1)
Quarter: 2017Q4

REPORT INFORMATION
  Report Type: Spontaneous
  Country: GB (occurrence: GB)
  Receive Date: 20171026
  Receipt Date: 20171026
  Transmission Date: 20180321
  Serious: Yes (Other)
  Sender: FDA-Public Use
  Company Number: GB-ASTRAZENECA-2017SF08174

PATIENT
  Age: 65 Year
  Sex: Female
  Weight: 87 kg

DRUGS (7)
  1. ATORVASTATIN [Concomitant]
     Active Substance: ATORVASTATIN
  2. RAMIPRIL. [Concomitant]
     Active Substance: RAMIPRIL
  3. CITALOPRAM [Concomitant]
     Active Substance: CITALOPRAM HYDROBROMIDE
  4. DAPAGLIFLOZIN. [Suspect]
     Active Substance: DAPAGLIFLOZIN
     Indication: TYPE 2 DIABETES MELLITUS
     Dosage: 10
     Route: 048
     Dates: start: 20170815, end: 20170908
  5. HUMALOG MIX75/25 [Concomitant]
     Active Substance: INSULIN LISPRO
  6. LIRAGLUTIDE [Concomitant]
     Active Substance: LIRAGLUTIDE
  7. BENDROFLUMETHIAZIDE [Concomitant]
     Active Substance: BENDROFLUMETHIAZIDE

REACTIONS (4)
  - Vulvovaginal erythema [Recovering/Resolving]
  - Vulvovaginal pain [Recovering/Resolving]
  - Pruritus generalised [Recovering/Resolving]
  - Excoriation [Recovering/Resolving]

NARRATIVE: CASE EVENT DATE: 20170823
